FAERS Safety Report 10108289 (Version 1)
Quarter: 2014Q2

REPORT INFORMATION
  Report Type: Report from Study
  Country: NL (occurrence: NL)
  Receive Date: 20140425
  Receipt Date: 20140425
  Transmission Date: 20141212
  Serious: Yes (Hospitalization)
  Sender: FDA-Public Use
  Company Number: NL-ROCHE-1388966

PATIENT
  Age: 54 Year
  Sex: Female

DRUGS (5)
  1. BEVACIZUMAB [Suspect]
     Indication: GASTRIC CANCER
     Route: 042
     Dates: start: 20140311
  2. CAPECITABINE [Suspect]
     Indication: GASTRIC CANCER
     Dosage: FOR 1-14 DAY.
     Route: 048
     Dates: start: 20140311
  3. TRASTUZUMAB [Suspect]
     Indication: GASTRIC CANCER
     Route: 042
     Dates: start: 20140311
  4. DOCETAXEL [Suspect]
     Indication: GASTRIC CANCER
     Route: 042
     Dates: start: 20140311
  5. OXALIPLATIN [Suspect]
     Indication: GASTRIC CANCER
     Route: 042
     Dates: start: 20140311

REACTIONS (2)
  - Dehydration [Recovering/Resolving]
  - Malaise [Recovering/Resolving]
